FAERS Safety Report 4546476-0 (Version None)
Quarter: 2005Q1

REPORT INFORMATION
  Report Type: 
  Country: None (occurrence: None)
  Receive Date: 20050103
  Receipt Date: 20041214
  Transmission Date: 20050727
  Serious: Yes (Death)
  Sender: FDA-Public Use
  Company Number: CA_041107458

PATIENT
  Age: 71 Year
  Sex: Male

DRUGS (15)
  1. XIGRIS [Suspect]
     Indication: SEPSIS
     Dosage: 24 UG/KG/HR
     Dates: start: 20041114
  2. CEFTRIAZONE [Concomitant]
  3. ENOXAPARIN SODIUM [Concomitant]
  4. LEVOFLOXACIN [Concomitant]
  5. NOREPINEPHRINE BITARTRATE [Concomitant]
  6. COMBIVENT [Concomitant]
  7. DOPAMINE HCL IN 5% DEXTROSE [Concomitant]
  8. INFLUENZA VIRUS VACCINE1 [Concomitant]
  9. LORAZEPAM [Concomitant]
  10. METRONIDAZOLE [Concomitant]
  11. MIDAZOLAM HCL [Concomitant]
  12. ALBUTEROL [Concomitant]
  13. SODIUM CHLORIDE [Concomitant]
  14. THIAMINE HCL [Concomitant]
  15. MORPHINE SULFATE [Concomitant]

REACTIONS (1)
  - SEPSIS [None]
